FAERS Safety Report 11873021 (Version 1)
Quarter: 2015Q4

REPORT INFORMATION
  Report Type: Spontaneous
  Country: US (occurrence: US)
  Receive Date: 20151228
  Receipt Date: 20151228
  Transmission Date: 20160305
  Serious: Yes (Other)
  Sender: FDA-Public Use
  Company Number: US-JNJFOC-20151221533

PATIENT
  Sex: Female
  Weight: 63.5 kg

DRUGS (1)
  1. TERAZOL [Suspect]
     Active Substance: TERCONAZOLE
     Indication: FUNGAL INFECTION
     Route: 067

REACTIONS (3)
  - Headache [Unknown]
  - Hysterectomy [Unknown]
  - Menopause [Unknown]
